FAERS Safety Report 14302614 (Version 4)
Quarter: 2018Q2

REPORT INFORMATION
  Report Type: Spontaneous
  Country: FR (occurrence: FR)
  Receive Date: 20171219
  Receipt Date: 20180421
  Transmission Date: 20180711
  Serious: Yes (Hospitalization, Congenital Anomaly, Other)
  Sender: FDA-Public Use
  Company Number: FR-AUROBINDO-AUR-APL-2017-45884

PATIENT
  Sex: Female
  Weight: 2.2 kg

DRUGS (7)
  1. NORVIR [Suspect]
     Active Substance: RITONAVIR
     Indication: HIV INFECTION
     Dosage: DOSAGE FORM: UNSPECIFIED1 DF, QD
     Route: 064
     Dates: start: 20160501, end: 20170129
  2. EPZICOM [Suspect]
     Active Substance: ABACAVIR SULFATE\LAMIVUDINE
     Indication: HIV INFECTION
     Dosage: DOSAGE FORM: UNSPECIFIED ()
     Route: 064
     Dates: end: 20170129
  3. EPZICOM [Suspect]
     Active Substance: ABACAVIR SULFATE\LAMIVUDINE
     Dosage: UNK ()
     Route: 064
  4. NEVIRAPINE. [Suspect]
     Active Substance: NEVIRAPINE
     Indication: PROPHYLAXIS
     Dosage: UNK
     Route: 065
  5. REYATAZ [Suspect]
     Active Substance: ATAZANAVIR SULFATE
     Indication: HIV INFECTION
     Dosage: DOSAGE FORM: UNSPECIFIED ()
     Route: 064
     Dates: start: 20160501, end: 20170129
  6. PREZISTA [Suspect]
     Active Substance: DARUNAVIR ETHANOLATE
     Indication: HIV INFECTION
     Dosage: UNK ()
     Route: 064
     Dates: start: 20160501, end: 20170129
  7. KIVEXA [Suspect]
     Active Substance: ABACAVIR SULFATE\LAMIVUDINE
     Indication: HIV INFECTION
     Dosage: UNK ()
     Route: 064
     Dates: start: 20160501, end: 20170129

REACTIONS (10)
  - Breast disorder [Unknown]
  - Foetal growth restriction [Recovering/Resolving]
  - Acoustic stimulation tests abnormal [Unknown]
  - Low set ears [Unknown]
  - Eosinophilia [Unknown]
  - Foetal exposure during pregnancy [Unknown]
  - Supernumerary nipple [Unknown]
  - Dermatitis exfoliative generalised [Not Recovered/Not Resolved]
  - Congenital naevus [Not Recovered/Not Resolved]
  - Dilatation ventricular [Unknown]

NARRATIVE: CASE EVENT DATE: 20170129
